FAERS Safety Report 12555323 (Version 1)
Quarter: 2016Q3

REPORT INFORMATION
  Report Type: Spontaneous
  Country: ES (occurrence: ES)
  Receive Date: 20160714
  Receipt Date: 20160714
  Transmission Date: 20161109
  Serious: Yes (Hospitalization, Other)
  Sender: FDA-Public Use
  Company Number: ES-ASTRAZENECA-2016SE68138

PATIENT
  Age: 74 Year
  Sex: Female
  Weight: 74.8 kg

DRUGS (8)
  1. ATACAND [Concomitant]
     Active Substance: CANDESARTAN CILEXETIL
     Dosage: 1 TABLET BEFORE BREAKFAST
  2. JANUVIA [Concomitant]
     Active Substance: SITAGLIPTIN PHOSPHATE
     Indication: TYPE 2 DIABETES MELLITUS
     Route: 048
     Dates: start: 201311
  3. XIGDUO XR [Suspect]
     Active Substance: DAPAGLIFLOZIN PROPANEDIOL\METFORMIN HYDROCHLORIDE
     Indication: TYPE 2 DIABETES MELLITUS
     Dosage: 5 MG/1000 MG, EVERY 12 HOURS,BEFORE BREAKFAST AND MEAL
     Route: 048
     Dates: start: 20160217, end: 20160522
  4. LOSARTAN. [Concomitant]
     Active Substance: LOSARTAN
     Route: 048
  5. PAROXETINE. [Concomitant]
     Active Substance: PAROXETINE
     Route: 048
  6. SIMVASTATIN. [Concomitant]
     Active Substance: SIMVASTATIN
     Route: 048
  7. ACTOS [Concomitant]
     Active Substance: PIOGLITAZONE HYDROCHLORIDE
     Indication: TYPE 2 DIABETES MELLITUS
     Route: 048
     Dates: start: 201311
  8. RONAME [Concomitant]
     Active Substance: GLIMEPIRIDE
     Dosage: HALF TABLET BEFORE MEAL
     Route: 048

REACTIONS (14)
  - Diarrhoea [Recovered/Resolved]
  - Renal tubular necrosis [Unknown]
  - Neutropenia [Unknown]
  - Hydronephrosis [Unknown]
  - Vomiting [Recovered/Resolved]
  - Escherichia urinary tract infection [Recovered/Resolved]
  - Klebsiella test positive [Unknown]
  - Urosepsis [Recovered/Resolved]
  - Abdominal pain [Recovered/Resolved]
  - Nephrolithiasis [Unknown]
  - Metabolic acidosis [Recovered/Resolved]
  - Ureteric stenosis [Unknown]
  - Pyelonephritis acute [Unknown]
  - Acute kidney injury [Recovered/Resolved]

NARRATIVE: CASE EVENT DATE: 20160522
